FAERS Safety Report 9974115 (Version 1)
Quarter: 2014Q1

REPORT INFORMATION
  Report Type: Report from Study
  Country: US (occurrence: US)
  Receive Date: 20140306
  Receipt Date: 20140306
  Transmission Date: 20141002
  Serious: No
  Sender: FDA-Public Use
  Company Number: US-ABBVIE-13P-163-1157927-00

PATIENT
  Age: 29 Year
  Sex: Male
  Weight: 74.91 kg

DRUGS (6)
  1. HUMIRA [Suspect]
     Indication: PSORIATIC ARTHROPATHY
     Dates: start: 2011
  2. PREDNISONE [Suspect]
     Indication: OROPHARYNGEAL SWELLING
     Dates: start: 2013
  3. PRILOSEC [Concomitant]
     Indication: GASTROOESOPHAGEAL REFLUX DISEASE
     Dates: start: 20130930
  4. TODOLAC [Concomitant]
     Indication: ARTHRITIS
  5. TODOLAC [Concomitant]
     Indication: INFLAMMATION
  6. ZYRTEC [Concomitant]
     Indication: HYPERSENSITIVITY

REACTIONS (12)
  - Malaise [Unknown]
  - Nasopharyngitis [Recovered/Resolved]
  - Nasopharyngitis [Recovered/Resolved]
  - Oropharyngeal swelling [Recovered/Resolved]
  - Weight decreased [Unknown]
  - Herpes zoster [Recovered/Resolved]
  - Back pain [Recovered/Resolved]
  - Arthralgia [Recovered/Resolved]
  - Drug dose omission [Unknown]
  - Oropharyngeal swelling [Unknown]
  - Rash [Recovered/Resolved]
  - Abdominal pain upper [Recovered/Resolved]
